FAERS Safety Report 23947521 (Version 1)
Quarter: 2024Q2

REPORT INFORMATION
  Report Type: Spontaneous
  Country: GB (occurrence: GB)
  Receive Date: 20240606
  Receipt Date: 20240606
  Transmission Date: 20240716
  Serious: Yes (Other)
  Sender: FDA-Public Use
  Company Number: GB-MHRA-TPP9287647C710249YC1716477934212

PATIENT
  Age: 45 Year
  Sex: Female
  Weight: 59 kg

DRUGS (22)
  1. DOXYCYCLINE [Suspect]
     Active Substance: DOXYCYCLINE\DOXYCYCLINE HYCLATE
     Indication: Ill-defined disorder
     Route: 048
     Dates: start: 20170828
  2. EXEMESTANE [Concomitant]
     Active Substance: EXEMESTANE
     Indication: Ill-defined disorder
     Route: 065
     Dates: start: 20240307
  3. ZOLPIDEM [Concomitant]
     Active Substance: ZOLPIDEM TARTRATE
     Indication: Ill-defined disorder
     Dosage: AT NIGHT
     Route: 065
     Dates: start: 20240520
  4. ATENOLOL [Concomitant]
     Active Substance: ATENOLOL
     Indication: Anxiety
     Dosage: TAKE ONE DAILY FOR ANXIETY/PALPITATIONS
     Dates: start: 20240520
  5. VORTIOXETINE [Concomitant]
     Active Substance: VORTIOXETINE
     Indication: Ill-defined disorder
     Dosage: AT NIGHT
     Route: 065
     Dates: start: 20230601
  6. VENLAFAXINE [Concomitant]
     Active Substance: VENLAFAXINE HYDROCHLORIDE
     Indication: Ill-defined disorder
     Route: 065
     Dates: start: 20240402
  7. COCODAMOL [Concomitant]
     Active Substance: ACETAMINOPHEN\CODEINE PHOSPHATE
     Indication: Ill-defined disorder
     Dosage: TAKE 1 OR 2 4 TIMES/DAY; NOT MORE THAN 8 IN 24 ...
     Route: 065
     Dates: start: 20180927
  8. METOCLOPRAMIDE [Concomitant]
     Active Substance: METOCLOPRAMIDE
     Indication: Vomiting
     Dosage: TIME INTERVAL: AS NECESSARY: TAKE ONE TABLET THREE TIMES DAILY WHEN REQUIRED FOR NAUSEA AND VOMIT...
     Route: 065
     Dates: start: 20240502, end: 20240507
  9. ALBUTEROL [Concomitant]
     Active Substance: ALBUTEROL
     Indication: Ill-defined disorder
     Dosage: TIME INTERVAL: AS NECESSARY
     Route: 065
     Dates: start: 20190114
  10. AMITRIPTYLINE HYDROCHLORIDE [Concomitant]
     Active Substance: AMITRIPTYLINE HYDROCHLORIDE
     Indication: Ill-defined disorder
     Dosage: TAKE ONE AT NIGHT CAN INCREASE TO TWO AT NIGHT AFTER 3 DAYS
     Route: 065
     Dates: start: 20240520
  11. DIAZEPAM [Concomitant]
     Active Substance: DIAZEPAM
     Indication: Ill-defined disorder
     Dosage: ONE OR TWO  TABLET AS REQUIRED, MAXIMUM THREE TIMES A DAY
     Route: 065
     Dates: start: 20240515
  12. MORPHINE SULFATE [Concomitant]
     Active Substance: MORPHINE SULFATE
     Indication: Pain
     Dosage: 2.5ML TO 5ML EVERY 4-6 HOURS FOR ACUTE SEVERE PAIN
     Route: 065
     Dates: start: 20230714
  13. BECLOMETHASONE DIPROPIONATE [Concomitant]
     Active Substance: BECLOMETHASONE DIPROPIONATE
     Indication: Ill-defined disorder
     Dosage: INHALE 2 DOSES TWICE DAILY
     Route: 065
     Dates: start: 20190114
  14. CHOLECALCIFEROL [Concomitant]
     Active Substance: CHOLECALCIFEROL
     Indication: Ill-defined disorder
     Route: 065
     Dates: start: 20240312, end: 20240423
  15. GOSERELIN [Concomitant]
     Active Substance: GOSERELIN
     Indication: Ill-defined disorder
     Dosage: INSERT ONE IMPLANT SC LOWER ANTERIOR ABDOMEN E.
     Route: 058
     Dates: start: 20240307
  16. SUMATRIPTAN [Concomitant]
     Active Substance: SUMATRIPTAN
     Indication: Headache
     Dosage: ONE TABLET AT ONSET OF HEADACHE, IF HEADACHE GETS....
     Route: 065
     Dates: start: 20240515
  17. MIRTAZAPINE [Concomitant]
     Active Substance: MIRTAZAPINE
     Indication: Ill-defined disorder
     Dosage: AT NIGHT
     Route: 065
     Dates: start: 20240402
  18. TAMOXIFEN [Concomitant]
     Active Substance: TAMOXIFEN
     Indication: Ill-defined disorder
     Route: 065
     Dates: start: 20230613
  19. ADCAL [Concomitant]
     Indication: Ill-defined disorder
     Dosage: TAKE ONE TWICE DAILY
     Route: 065
     Dates: start: 20240312
  20. CYCLIZINE [Concomitant]
     Active Substance: CYCLIZINE
     Indication: Ill-defined disorder
     Dosage: TIME INTERVAL: AS NECESSARY: TAKE ONE UP TO  THREE TIMES A DAY ORALLY WHEN R...
     Route: 048
     Dates: start: 20240318, end: 20240415
  21. ZOPICLONE [Concomitant]
     Active Substance: ZOPICLONE
     Indication: Ill-defined disorder
     Dosage: TIME INTERVAL: AS NECESSARY: TAKE ONE AT NIGHT WHEN REQUIRED
     Route: 065
     Dates: start: 20240402
  22. QUETIAPINE [Concomitant]
     Active Substance: QUETIAPINE
     Indication: Ill-defined disorder
     Dosage: TAKE 2 IN THE MORNING (50MG) AND 3 AT NIGHT (75...
     Route: 065
     Dates: start: 20231031

REACTIONS (2)
  - Swelling [Recovered/Resolved]
  - Pain [Unknown]

NARRATIVE: CASE EVENT DATE: 20170828
